FAERS Safety Report 7110953 (Version 4)
Quarter: 2014Q2

REPORT INFORMATION
  Report Type: Spontaneous
  Country: US (occurrence: US)
  Receive Date: 20090911
  Receipt Date: 20140407
  Transmission Date: 20141212
  Serious: Yes (Death, Hospitalization, Other)
  Sender: FDA-Public Use
  Company Number: US-ALEXION-A200900710

PATIENT
  Age: 70 Year
  Sex: Male

DRUGS (16)
  1. SOLIRIS [Suspect]
     Indication: PAROXYSMAL NOCTURNAL HAEMOGLOBINURIA
     Dosage: 600 MG, UNK
     Route: 042
     Dates: start: 20080320, end: 20080411
  2. SOLIRIS [Suspect]
     Dosage: 900 MG, UNK
     Route: 042
     Dates: start: 20080416, end: 20080612
  3. SOLIRIS [Suspect]
     Dosage: 900 MG, UNK
     Route: 042
     Dates: start: 20080917, end: 20081114
  4. SOLIRIS [Suspect]
     Dosage: 900 MG, UNK
     Route: 042
     Dates: start: 20081219, end: 20090219
  5. VICODIN [Concomitant]
     Dosage: 5/500 MG, 1-2 Q6H, PRN
     Route: 048
  6. FOLIC ACID [Concomitant]
     Dosage: 1 MG, QD
     Route: 048
  7. ALLOPURINOL [Concomitant]
     Dosage: 150 MG, QD
     Route: 048
  8. ASPIRIN [Concomitant]
     Dosage: 81 MG, QD
     Route: 048
  9. RENAGEL                            /01459901/ [Concomitant]
     Dosage: 800 MG, WITH MEALS
     Route: 048
  10. LOPRESSOR [Concomitant]
     Dosage: 12.5 MG, BID
     Route: 048
  11. LASIX                              /00032601/ [Concomitant]
     Dosage: 40 MG, QD
     Route: 048
  12. NORTRIPTYLINE [Concomitant]
     Route: 048
  13. DECADRON                           /00016001/ [Concomitant]
     Dosage: 4 MG, QD
     Route: 048
  14. MORPHINE [Concomitant]
     Dosage: 10 MG, PRN
     Route: 048
  15. EXJADE [Concomitant]
     Indication: IRON OVERLOAD
  16. PROTONIX [Concomitant]

REACTIONS (18)
  - Cardiac failure acute [Fatal]
  - Packed red blood cell transfusion [Unknown]
  - Iron overload [Unknown]
  - Serum ferritin increased [Not Recovered/Not Resolved]
  - Drug ineffective [Unknown]
  - Hypophagia [Unknown]
  - Dehydration [Unknown]
  - Abdominal pain [Unknown]
  - Diarrhoea [Unknown]
  - Clostridium difficile colitis [Unknown]
  - Candida infection [Unknown]
  - Duodenal ulcer [Unknown]
  - Helicobacter infection [Unknown]
  - Asthenia [Unknown]
  - Dyspnoea [Unknown]
  - Fatigue [Unknown]
  - Haemoglobin decreased [Not Recovered/Not Resolved]
  - Blood pressure decreased [Unknown]
